FAERS Safety Report 8293819-0 (Version None)
Quarter: 2012Q2

REPORT INFORMATION
  Report Type: 
  Country: None (occurrence: None)
  Receive Date: 20120418
  Receipt Date: 20120412
  Transmission Date: 20120825
  Serious: Yes (Other)
  Sender: FDA-Public Use
  Company Number: US-BAYER-2012-035993

PATIENT
  Age: 19 Year
  Sex: Female

DRUGS (2)
  1. YASMIN [Suspect]
     Dosage: UNK
     Dates: start: 20010101, end: 20030101
  2. YASMIN [Suspect]
     Dosage: UNK
     Dates: start: 20050201, end: 20050601

REACTIONS (1)
  - CHOLECYSTITIS [None]
